FAERS Safety Report 5959552-2 (Version None)
Quarter: 2008Q4

REPORT INFORMATION
  Report Type: 
  Country: None (occurrence: None)
  Receive Date: 20081118
  Receipt Date: 20081107
  Transmission Date: 20090506
  Serious: Yes (Hospitalization)
  Sender: FDA-Public Use
  Company Number: IPS_01327_2008

PATIENT
  Sex: Female

DRUGS (1)
  1. APO-GO (AGO-GO PEN - APOMORPHINE HYDROCHLORIDE) (NOT SPECIFIED) [Suspect]
     Indication: DRUG USE FOR UNKNOWN INDICATION
     Dosage: (DF,SUBCUTANEOUS)
     Route: 058

REACTIONS (2)
  - INJECTION SITE ABSCESS [None]
  - INJECTION SITE NODULE [None]
